FAERS Safety Report 9924411 (Version 1)
Quarter: 2014Q1

REPORT INFORMATION
  Report Type: Spontaneous
  Country: US (occurrence: None)
  Receive Date: 20140224
  Receipt Date: 20140224
  Transmission Date: 20141002
  Serious: No
  Sender: FDA-Public Use
  Company Number: None

PATIENT
  Age: 46 Year
  Sex: Male
  Weight: 117.94 kg

DRUGS (1)
  1. SIMVASTATIN [Suspect]
     Indication: BLOOD CHOLESTEROL INCREASED
     Dosage: 1 PILL  ONCE DAILY

REACTIONS (6)
  - Fatigue [None]
  - Weight increased [None]
  - Memory impairment [None]
  - Stress at work [None]
  - Liver injury [None]
  - Myalgia [None]
